FAERS Safety Report 4485311-6 (Version None)
Quarter: 2004Q4

REPORT INFORMATION
  Report Type: 
  Country: None (occurrence: None)
  Receive Date: 20041021
  Receipt Date: 20041006
  Transmission Date: 20050328
  Serious: Yes (Death, Hospitalization, Other)
  Sender: FDA-Public Use
  Company Number: ATO-04-0860

PATIENT
  Age: 20 Year
  Sex: Male
  Weight: 70 kg

DRUGS (9)
  1. TRISENOX [Suspect]
     Indication: TESTICULAR GERM CELL CANCER
     Dosage: 10.8 TO 15.3 MG/DOSE (0.25 MG/KG, 5X/WK, Q28D), IVI
     Route: 042
     Dates: start: 20020904, end: 20021006
  2. AMITRIPTYLINE HCL [Concomitant]
  3. VALDECOXIB [Concomitant]
  4. MORPHINE [Concomitant]
  5. MAGNESIUM [Concomitant]
  6. LISINOPRIL [Concomitant]
  7. TEMAZEPAM [Concomitant]
  8. ATENOLOL [Concomitant]
  9. GRANISETRON [Concomitant]

REACTIONS (11)
  - BLOOD PRESSURE SYSTOLIC DECREASED [None]
  - CARDIO-RESPIRATORY ARREST [None]
  - CIRCULATORY COLLAPSE [None]
  - DISORIENTATION [None]
  - HYPERHIDROSIS [None]
  - MENTAL STATUS CHANGES [None]
  - PERFORMANCE STATUS DECREASED [None]
  - PUPILLARY REFLEX IMPAIRED [None]
  - SUPRAVENTRICULAR TACHYCARDIA [None]
  - TORSADE DE POINTES [None]
  - VENTRICULAR TACHYCARDIA [None]
